FAERS Safety Report 11075847 (Version 2)
Quarter: 2015Q2

REPORT INFORMATION
  Report Type: Spontaneous
  Country: US (occurrence: US)
  Receive Date: 20150429
  Receipt Date: 20150514
  Transmission Date: 20150821
  Serious: No
  Sender: FDA-Public Use
  Company Number: US-PFIZER INC-2015142401

PATIENT
  Age: 57 Year
  Sex: Female
  Weight: 66.89 kg

DRUGS (3)
  1. FLAGYL [Interacting]
     Active Substance: METRONIDAZOLE\METRONIDAZOLE HYDROCHLORIDE
     Indication: ABDOMINAL INFECTION
  2. FLAGYL [Suspect]
     Active Substance: METRONIDAZOLE\METRONIDAZOLE HYDROCHLORIDE
     Indication: URINARY TRACT INFECTION
     Dosage: UNK
     Route: 048
     Dates: start: 20150315, end: 20150322
  3. LEVAQUIN [Interacting]
     Active Substance: LEVOFLOXACIN
     Indication: URINARY TRACT INFECTION
     Dosage: UNK
     Dates: start: 20150315, end: 20150322

REACTIONS (7)
  - Drug interaction [Unknown]
  - Eyelid oedema [Unknown]
  - Pharyngeal oedema [Unknown]
  - Urticaria [Unknown]
  - Drug hypersensitivity [Unknown]
  - Pruritus [Unknown]
  - Rash [Recovered/Resolved]

NARRATIVE: CASE EVENT DATE: 20150315
